FAERS Safety Report 12794992 (Version 2)
Quarter: 2017Q1

REPORT INFORMATION
  Report Type: Spontaneous
  Country: US (occurrence: US)
  Receive Date: 20160929
  Receipt Date: 20170103
  Transmission Date: 20170428
  Serious: Yes (Death)
  Sender: FDA-Public Use
  Company Number: US-SA-2016SA179180

PATIENT
  Age: 4 Month
  Sex: Female

DRUGS (1)
  1. MYOZYME [Suspect]
     Active Substance: ALGLUCOSIDASE ALFA
     Indication: GLYCOGEN STORAGE DISEASE TYPE II
     Route: 065
     Dates: start: 2011, end: 2011

REACTIONS (2)
  - Ventricular tachycardia [Fatal]
  - Ventricular fibrillation [Fatal]

NARRATIVE: CASE EVENT DATE: 20111120
